FAERS Safety Report 22162534 (Version 1)
Quarter: 2023Q1

REPORT INFORMATION
  Report Type: Report from Study
  Country: US (occurrence: US)
  Receive Date: 20230331
  Receipt Date: 20230331
  Transmission Date: 20230418
  Serious: Yes (Other)
  Sender: FDA-Public Use
  Company Number: US-SEATTLE GENETICS-2023SGN01892

PATIENT
  Age: 55 Year
  Sex: Female

DRUGS (4)
  1. TUCATINIB [Suspect]
     Active Substance: TUCATINIB
     Indication: Breast cancer female
     Dosage: UNK
     Route: 065
     Dates: start: 20230116, end: 20230303
  2. TUCATINIB [Suspect]
     Active Substance: TUCATINIB
     Dosage: 150 MG, BID
     Route: 065
  3. XELODA [Concomitant]
     Active Substance: CAPECITABINE
     Indication: Breast cancer female
     Route: 065
  4. HERCEPTIN [Concomitant]
     Active Substance: TRASTUZUMAB
     Indication: Breast cancer female
     Route: 065

REACTIONS (7)
  - Gastric ulcer perforation [Unknown]
  - Asthenia [Unknown]
  - Malaise [Unknown]
  - Sinusitis [Unknown]
  - Eyelid margin crusting [Unknown]
  - Fatigue [Unknown]
  - Abdominal pain [Recovered/Resolved]

NARRATIVE: CASE EVENT DATE: 20230303
